FAERS Safety Report 7561245-5 (Version None)
Quarter: 2011Q2

REPORT INFORMATION
  Report Type: 
  Country: None (occurrence: None)
  Receive Date: 20110621
  Receipt Date: 20100728
  Transmission Date: 20111010
  Serious: No
  Sender: FDA-Public Use
  Company Number: US-ASTRAZENECA-2009UW10393

PATIENT
  Age: 85 Year
  Sex: Female

DRUGS (2)
  1. SINGULAIR [Concomitant]
  2. PULMICORT FLEXHALER [Suspect]
     Route: 055

REACTIONS (3)
  - MIDDLE INSOMNIA [None]
  - COUGH [None]
  - HEAD TITUBATION [None]
